FAERS Safety Report 4603982-8 (Version None)
Quarter: 2005Q1

REPORT INFORMATION
  Report Type: 
  Country: None (occurrence: None)
  Receive Date: 20050308
  Receipt Date: 20050228
  Transmission Date: 20050727
  Serious: Yes (Hospitalization)
  Sender: FDA-Public Use
  Company Number: TPA2005A00234

PATIENT
  Age: 75 Year
  Sex: Female
  Weight: 58.9676 kg

DRUGS (8)
  1. ACTOS [Suspect]
     Indication: DIABETES MELLITUS NON-INSULIN-DEPENDENT
     Dosage: 15 MG, 1 IN 1 D, PER ORAL
     Route: 048
     Dates: start: 20040228
  2. METOPROLOL (METOPROLOL) (20 MILLIGRAM) [Suspect]
     Indication: HYPERTENSION
     Dosage: 20 MG, 1 IN 1 D, PER ORAL
     Route: 048
  3. DIOVAN [Suspect]
     Indication: HYPERTENSION
     Dosage: 40 MG, 1 IN 1 D, PER ORAL
     Route: 048
     Dates: end: 20050207
  4. CALCIUM (CALCIUM) [Concomitant]
  5. PRAVACHOL (PRAVASTATIN SODIUM) (40 MILLIGRAM) [Concomitant]
  6. PRILOSEC [Concomitant]
  7. ASPIRIN [Concomitant]
  8. METFORMIN HCL [Concomitant]

REACTIONS (9)
  - ANAEMIA [None]
  - ARTHRALGIA [None]
  - BLOOD PRESSURE DIASTOLIC DECREASED [None]
  - DYSPNOEA [None]
  - FATIGUE [None]
  - GALLBLADDER OPERATION [None]
  - HYPOTENSION [None]
  - LUNG NEOPLASM MALIGNANT [None]
  - PAIN [None]
